FAERS Safety Report 5603120-9 (Version None)
Quarter: 2008Q1

REPORT INFORMATION
  Report Type: 
  Country: None (occurrence: None)
  Receive Date: 20080125
  Receipt Date: 20080116
  Transmission Date: 20080703
  Serious: Yes (Other)
  Sender: FDA-Public Use
  Company Number: US-PFIZER INC-2008006112

PATIENT

DRUGS (1)
  1. CHANTIX [Suspect]

REACTIONS (1)
  - CATARACT OPERATION [None]
